FAERS Safety Report 23571826 (Version 1)
Quarter: 2024Q1

REPORT INFORMATION
  Report Type: Spontaneous
  Country: US (occurrence: None)
  Receive Date: 20240227
  Receipt Date: 20240227
  Transmission Date: 20240409
  Serious: Yes (Hospitalization)
  Sender: FDA-Public Use
  Company Number: None

PATIENT
  Age: 45 Year
  Sex: Female
  Weight: 86.4 kg

DRUGS (1)
  1. INJECTAFER [Suspect]
     Active Substance: FERRIC CARBOXYMALTOSE
     Indication: Anaemia
     Route: 041
     Dates: start: 20240217, end: 20240224

REACTIONS (5)
  - Abdominal pain upper [None]
  - Ear discomfort [None]
  - Infusion related reaction [None]
  - Back pain [None]
  - Blood pressure decreased [None]

NARRATIVE: CASE EVENT DATE: 20240224
